FAERS Safety Report 16421752 (Version 2)
Quarter: 2019Q2

REPORT INFORMATION
  Report Type: Spontaneous
  Country: US (occurrence: US)
  Receive Date: 20190612
  Receipt Date: 20190619
  Transmission Date: 20190711
  Serious: Yes (Other)
  Sender: FDA-Public Use
  Company Number: US-PFIZER INC-2019244547

PATIENT
  Age: 58 Year
  Sex: Female

DRUGS (4)
  1. DOXYCYCLINE. [Concomitant]
     Active Substance: DOXYCYCLINE
     Indication: NODULE
     Dosage: UNK
     Dates: start: 201507
  2. MYCOPHENOLATE MOFETIL. [Suspect]
     Active Substance: MYCOPHENOLATE MOFETIL
     Indication: IMMUNOSUPPRESSANT DRUG THERAPY
     Dosage: UNK
     Dates: start: 201110, end: 201608
  3. TACROLIMUS. [Suspect]
     Active Substance: TACROLIMUS
     Indication: IMMUNOSUPPRESSANT DRUG THERAPY
     Dosage: UNK
     Dates: start: 201110
  4. PREDNISONE. [Concomitant]
     Active Substance: PREDNISONE
     Indication: PANNICULITIS
     Dosage: UNK
     Dates: start: 201512

REACTIONS (1)
  - Sarcoma of skin [Recovering/Resolving]

NARRATIVE: CASE EVENT DATE: 201607
